FAERS Safety Report 21366092 (Version 2)
Quarter: 2022Q3

REPORT INFORMATION
  Report Type: Spontaneous
  Country: TW (occurrence: TW)
  Receive Date: 20220922
  Receipt Date: 20220926
  Transmission Date: 20221026
  Serious: Yes (Hospitalization, Other)
  Sender: FDA-Public Use
  Company Number: TW-009507513-2209USA006636

PATIENT
  Age: 64 Year
  Sex: Male
  Weight: 67 kg

DRUGS (4)
  1. KEYTRUDA [Suspect]
     Active Substance: PEMBROLIZUMAB
     Indication: Squamous cell carcinoma of head and neck
     Dosage: 200 MILLIGRAM
     Route: 042
     Dates: start: 20220726, end: 20220726
  2. CETUXIMAB SAROTALOCAN [Suspect]
     Active Substance: CETUXIMAB SAROTALOCAN
     Indication: Squamous cell carcinoma of head and neck
     Dosage: 230.4 MILLILITER
     Route: 042
     Dates: start: 20220804, end: 20220804
  3. FEURI [Concomitant]
     Dosage: UNK
  4. VALSARTAN [Concomitant]
     Active Substance: VALSARTAN
     Dosage: UNK

REACTIONS (2)
  - Tracheostomy [Recovering/Resolving]
  - Pneumonia [Recovered/Resolved]

NARRATIVE: CASE EVENT DATE: 20220805
